FAERS Safety Report 4991004-9 (Version None)
Quarter: 2006Q2

REPORT INFORMATION
  Report Type: 
  Country: None (occurrence: None)
  Receive Date: 20060428
  Receipt Date: 20060418
  Transmission Date: 20061013
  Serious: Yes (Life-Threatening, Other)
  Sender: FDA-Public Use
  Company Number: 2006052747

PATIENT
  Age: 61 Year
  Sex: Female
  Weight: 48.2 kg

DRUGS (3)
  1. VORICONAZOLE  (VORICONAZOLE ) [Suspect]
     Indication: ASPERGILLOSIS
     Dosage: (200 MG), ORAL
     Route: 048
     Dates: start: 20060308, end: 20060312
  2. TACROLIMUS (TACROLIMUS) [Concomitant]
  3. AMPHOTERICIN B [Concomitant]

REACTIONS (1)
  - HYPERKALAEMIA [None]
